FAERS Safety Report 9922037 (Version 2)
Quarter: 2014Q2

REPORT INFORMATION
  Report Type: Report from Study
  Country: US (occurrence: KR)
  Receive Date: 20140225
  Receipt Date: 20140409
  Transmission Date: 20141212
  Serious: Yes (Hospitalization)
  Sender: FDA-Public Use
  Company Number: KR-FRI-1000054455

PATIENT
  Age: 71 Year
  Sex: Male
  Weight: 70 kg

DRUGS (20)
  1. ROFLUMILAST [Suspect]
     Indication: CHRONIC OBSTRUCTIVE PULMONARY DISEASE
     Dosage: 500 MCG
     Route: 048
     Dates: start: 20131226, end: 20140128
  2. AMIPINE [Concomitant]
     Dates: start: 20131226, end: 20140128
  3. SULFOLASE [Concomitant]
     Dates: start: 20131004, end: 20140128
  4. SERETIDE DISCUS [Concomitant]
     Dates: start: 20130808, end: 20140118
  5. MEPTIN SWINGHALER [Concomitant]
     Dates: start: 20131031, end: 20140128
  6. ONBREZ BREEZHALER [Concomitant]
     Dates: start: 20130808, end: 20140128
  7. AMIPINE INJ [Concomitant]
     Dates: start: 20140128, end: 20140128
  8. MICARDIS [Concomitant]
     Dates: start: 20130903
  9. DEPAS [Concomitant]
     Dates: start: 20131129, end: 20140121
  10. HARNAL D [Concomitant]
     Dates: start: 20130924
  11. MEGESTROL ES SUSPENSION [Concomitant]
     Dates: start: 20131227, end: 20140102
  12. ZOLOFT [Concomitant]
     Dates: start: 20131206, end: 20140120
  13. SALON H9C VIAL [Concomitant]
     Dates: start: 20140128, end: 20140128
  14. SMOF LIPID [Concomitant]
     Dates: start: 20131227, end: 20131227
  15. GELOMYRTOL FORTE [Concomitant]
     Dates: start: 20131004, end: 20140128
  16. METHYLON [Concomitant]
     Dates: start: 20140128
  17. SPIRONOLACTONE [Concomitant]
     Dates: start: 20130128, end: 20140210
  18. STILLEN [Concomitant]
     Dates: start: 20130903, end: 20140128
  19. BONALING-A [Concomitant]
     Dates: start: 20131226, end: 20140128
  20. ZANIDIP [Concomitant]
     Dates: start: 20131031, end: 20140120

REACTIONS (4)
  - Hypophagia [Recovered/Resolved]
  - Dizziness [Recovered/Resolved with Sequelae]
  - Syncope [Recovered/Resolved]
  - Off label use [Unknown]
